FAERS Safety Report 5187563-6 (Version None)
Quarter: 2006Q4

REPORT INFORMATION
  Report Type: 
  Country: None (occurrence: None)
  Receive Date: 20061213
  Receipt Date: 20061130
  Transmission Date: 20070319
  Serious: Yes (Hospitalization)
  Sender: FDA-Public Use
  Company Number: 2006US002795

PATIENT
  Age: 65 Year
  Sex: Female

DRUGS (3)
  1. PROTOPIC [Suspect]
     Indication: RASH
     Dosage: CUTANEOUS
     Route: 003
     Dates: start: 20060321, end: 20060413
  2. UMECTA (UREA) [Suspect]
     Indication: HYPERKERATOSIS
     Dosage: 3, CUTANEOUS
     Route: 003
     Dates: start: 20060321, end: 20060413
  3. PREMARIN [Concomitant]

REACTIONS (16)
  - APPLICATION SITE DRYNESS [None]
  - APPLICATION SITE ERYTHEMA [None]
  - APPLICATION SITE IRRITATION [None]
  - APPLICATION SITE PAIN [None]
  - APPLICATION SITE PAPULES [None]
  - APPLICATION SITE REACTION [None]
  - BURSITIS INFECTIVE [None]
  - CELLULITIS [None]
  - DRUG INEFFECTIVE [None]
  - ERYTHEMA [None]
  - OEDEMA PERIPHERAL [None]
  - PYREXIA [None]
  - SKIN DISORDER [None]
  - SKIN EXFOLIATION [None]
  - STAPHYLOCOCCAL SKIN INFECTION [None]
  - WHITE BLOOD CELL COUNT DECREASED [None]
